FAERS Safety Report 12248427 (Version 1)
Quarter: 2016Q2

REPORT INFORMATION
  Report Type: Spontaneous
  Country: US (occurrence: None)
  Receive Date: 20160407
  Receipt Date: 20160407
  Transmission Date: 20160815
  Serious: No
  Sender: FDA-Public Use
  Company Number: None

PATIENT
  Age: 65 Year
  Sex: Female

DRUGS (1)
  1. CAPECITABINE 500MG TEVA [Suspect]
     Active Substance: CAPECITABINE
     Indication: OESOPHAGEAL CARCINOMA
     Dosage: 4 TABLETS BID ORAL
     Route: 048
     Dates: start: 201603, end: 201604

REACTIONS (4)
  - Muscular weakness [None]
  - Neck pain [None]
  - Back pain [None]
  - Abdominal pain upper [None]

NARRATIVE: CASE EVENT DATE: 201603
